FAERS Safety Report 25174648 (Version 1)
Quarter: 2025Q2

REPORT INFORMATION
  Report Type: Spontaneous
  Country: US (occurrence: US)
  Receive Date: 20250408
  Receipt Date: 20250408
  Transmission Date: 20250716
  Serious: No
  Sender: AVERITAS
  Company Number: US-GRUNENTHAL-2025-104491

PATIENT
  Age: 76 Year
  Sex: Male

DRUGS (1)
  1. QUTENZA [Suspect]
     Active Substance: CAPSAICIN
     Indication: Product used for unknown indication
     Route: 061
     Dates: start: 20250226, end: 20250226

REACTIONS (2)
  - Cognitive disorder [Recovering/Resolving]
  - Hallucination, visual [Recovering/Resolving]

NARRATIVE: CASE EVENT DATE: 20250306
